FAERS Safety Report 4456368-3 (Version None)
Quarter: 2004Q3

REPORT INFORMATION
  Report Type: 
  Country: None (occurrence: None)
  Receive Date: 20040902
  Receipt Date: 20040712
  Transmission Date: 20050211
  Serious: No
  Sender: FDA-Public Use
  Company Number: 200417027BWH

PATIENT
  Age: 72 Year
  Sex: Male
  Weight: 83.9154 kg

DRUGS (5)
  1. LEVITRA [Suspect]
     Indication: ERECTILE DYSFUNCTION
     Dosage: 10 MG, TOTAL DAILY, ORAL; SEE IMAGE
     Route: 048
     Dates: start: 20040301
  2. LISINOPRIL [Concomitant]
  3. SIMVASTATIN [Concomitant]
  4. VITAMIN E [Concomitant]
  5. SEREVENT [Concomitant]

REACTIONS (1)
  - ERECTILE DYSFUNCTION [None]
